FAERS Safety Report 14506820 (Version 5)
Quarter: 2019Q1

REPORT INFORMATION
  Report Type: Spontaneous
  Country: AT (occurrence: AT)
  Receive Date: 20180208
  Receipt Date: 20190225
  Transmission Date: 20190417
  Serious: Yes (Other)
  Sender: FDA-Public Use
  Company Number: AT-PFIZER INC-2018051104

PATIENT
  Age: 31 Year
  Sex: Male

DRUGS (10)
  1. ZYPREXA [Suspect]
     Active Substance: OLANZAPINE
     Dosage: 15 MG, 1X/DAY
     Dates: start: 20170228, end: 20170303
  2. ZYPREXA [Suspect]
     Active Substance: OLANZAPINE
     Dosage: 10 MG, 1X/DAY
     Dates: start: 20170329
  3. TEMESTA [LORAZEPAM] [Suspect]
     Active Substance: LORAZEPAM
     Dosage: 1 MG, 1X/DAY
     Route: 065
     Dates: start: 20170224, end: 20170303
  4. RISPERDAL [Suspect]
     Active Substance: RISPERIDONE
     Dosage: 1 DF, 1X/DAY
     Dates: start: 20170302, end: 20170306
  5. RISPERDAL [Suspect]
     Active Substance: RISPERIDONE
     Dosage: 1 MG, DAILY
     Dates: start: 20170224, end: 20170303
  6. RISPERDAL [Suspect]
     Active Substance: RISPERIDONE
     Dosage: 6 MG, 1X/DAY
     Dates: start: 20170228, end: 20170302
  7. ZYPREXA [Suspect]
     Active Substance: OLANZAPINE
     Dosage: 15 MG, 1X/DAY
     Dates: start: 20170310, end: 20170328
  8. ZYPREXA [Suspect]
     Active Substance: OLANZAPINE
     Dosage: 20 MG, 1X/DAY
     Dates: start: 20170304, end: 20170309
  9. RISPERIDON [Concomitant]
     Active Substance: RISPERIDONE
     Dosage: 6 MG, UNK
     Dates: start: 20170228, end: 20170306
  10. TEMESTA [LORAZEPAM] [Suspect]
     Active Substance: LORAZEPAM
     Dosage: UNK UNK, AS NEEDED
     Dates: start: 20170304, end: 20170319

REACTIONS (4)
  - Erectile dysfunction [Recovered/Resolved]
  - Fatigue [Unknown]
  - Somnolence [Unknown]
  - Orgasmic sensation decreased [Recovered/Resolved]

NARRATIVE: CASE EVENT DATE: 201703
